FAERS Safety Report 8265429 (Version 2)
Quarter: 2015Q3

REPORT INFORMATION
  Report Type: Spontaneous
  Country: None (occurrence: US)
  Receive Date: 20111128
  Receipt Date: 20150928
  Transmission Date: 20151125
  Serious: Yes (Death, Hospitalization, Other)
  Sender: FDA-Public Use
  Company Number: US-TEVA-310507USA

PATIENT
  Age: 50 Year
  Sex: Female

DRUGS (5)
  1. INSULIN [Interacting]
     Active Substance: INSULIN NOS
     Route: 065
  2. FAT EMULSION NOS [Interacting]
     Active Substance: EGG PHOSPHOLIPIDS\SAFFLOWER OIL\SOYBEAN OIL
     Indication: CARDIOGENIC SHOCK
     Route: 042
  3. BUPROPION HYDROCHLORIDE. [Suspect]
     Active Substance: BUPROPION HYDROCHLORIDE
     Route: 048
  4. METOPROLOL [Suspect]
     Active Substance: METOPROLOL
     Route: 048
  5. FENOFIBRATE. [Concomitant]
     Active Substance: FENOFIBRATE

REACTIONS (6)
  - Cardiac arrest [Fatal]
  - Cardiogenic shock [Fatal]
  - Drug interaction [Unknown]
  - Seizure [Unknown]
  - Overdose [Fatal]
  - Multi-organ failure [Fatal]
